FAERS Safety Report 6894526-9 (Version None)
Quarter: 2010Q3

REPORT INFORMATION
  Report Type: 
  Country: None (occurrence: None)
  Receive Date: 20100802
  Receipt Date: 20100727
  Transmission Date: 20110219
  Serious: Yes (Hospitalization)
  Sender: FDA-Public Use
  Company Number: JP-BAYER-201013291BYL

PATIENT
  Age: 82 Year
  Sex: Male
  Weight: 52 kg

DRUGS (22)
  1. NEXAVAR [Suspect]
     Indication: HEPATIC NEOPLASM MALIGNANT
     Dosage: UNIT DOSE: 200 MG
     Route: 048
     Dates: start: 20100301
  2. NEXAVAR [Suspect]
     Dosage: UNIT DOSE: 200 MG
     Route: 048
     Dates: start: 20100406, end: 20100411
  3. NEXAVAR [Suspect]
     Dosage: UNIT DOSE: 200 MG
     Route: 048
     Dates: start: 20100512, end: 20100625
  4. LASIX [Concomitant]
     Route: 048
     Dates: start: 20050811
  5. AZELASTINE HCL [Concomitant]
     Route: 048
     Dates: start: 20050811
  6. ITOROL [Concomitant]
     Route: 048
     Dates: start: 20050721
  7. TANATRIL [Concomitant]
     Route: 048
     Dates: start: 20050811
  8. GLUCOBAY [Concomitant]
     Route: 048
     Dates: start: 20090116, end: 20100625
  9. WARFARIN SODIUM [Concomitant]
     Route: 048
     Dates: start: 20060904
  10. GLYBURIDE [Concomitant]
     Route: 048
     Dates: start: 20061225, end: 20100625
  11. VASOLAN [Concomitant]
     Route: 048
     Dates: start: 20070416
  12. FRANDOL S [Concomitant]
     Route: 058
     Dates: start: 20070305
  13. SELARA [Concomitant]
     Route: 048
     Dates: start: 20081114
  14. TAMSULOSIN HCL [Concomitant]
     Route: 048
     Dates: start: 20070530
  15. TAKEPRON [Concomitant]
     Route: 048
     Dates: start: 20061018
  16. URSO 250 [Concomitant]
     Route: 048
     Dates: start: 19980101
  17. MAGLAX [Concomitant]
     Route: 048
     Dates: start: 20081216
  18. LENDORMIN [Concomitant]
     Route: 048
     Dates: start: 20060904
  19. NITROPEN [Concomitant]
     Route: 048
     Dates: start: 20090813
  20. UREPEARL L [Concomitant]
     Route: 061
     Dates: start: 20100223
  21. TALION [Concomitant]
     Route: 048
     Dates: start: 20100305, end: 20100309
  22. RESTAMIN [Concomitant]
     Route: 061
     Dates: start: 20100312

REACTIONS (5)
  - C-REACTIVE PROTEIN INCREASED [None]
  - DECREASED APPETITE [None]
  - DEMENTIA [None]
  - DYSPNOEA [None]
  - MALAISE [None]
